FAERS Safety Report 9347365 (Version 2)
Quarter: 2013Q3

REPORT INFORMATION
  Report Type: Report from Study
  Country: CA (occurrence: CA)
  Receive Date: 20130613
  Receipt Date: 20130724
  Transmission Date: 20140515
  Serious: Yes (Hospitalization, Other)
  Sender: FDA-Public Use
  Company Number: CA-ALEXION PHARMACEUTICALS INC.-A201301386

PATIENT
  Age: 8 Year
  Sex: Female
  Weight: 41.8 kg

DRUGS (7)
  1. ECULIZUMAB [Suspect]
     Indication: HAEMOLYTIC URAEMIC SYNDROME
     Dosage: 600 MG, Q2W
     Route: 042
     Dates: start: 20100517
  2. ECULIZUMAB [Suspect]
     Dosage: 900 MG, Q2W
     Route: 042
     Dates: start: 20120501
  3. LOSARTAN [Concomitant]
     Dosage: 12.5 MG ^DIE^
     Route: 048
     Dates: start: 20100503, end: 20100527
  4. LOSARTAN [Concomitant]
     Dosage: 25 MG ^DIE^
     Route: 048
     Dates: start: 20100503, end: 20100527
  5. MINIPRESS [Concomitant]
     Dosage: 1 MG, BID
     Route: 048
  6. NORVASC [Concomitant]
     Dosage: 3 MG ^DIE^
     Route: 048
     Dates: end: 20100513
  7. PEN V [Concomitant]
     Indication: INFECTION PROPHYLAXIS
     Dosage: 300 MG, BID
     Dates: start: 20091008, end: 20101213

REACTIONS (2)
  - Thrombocytopenia [Recovered/Resolved]
  - Viral infection [Recovered/Resolved]
